FAERS Safety Report 9426434 (Version 1)
Quarter: 2013Q3

REPORT INFORMATION
  Report Type: Report from Study
  Country: TW (occurrence: TW)
  Receive Date: 20130730
  Receipt Date: 20130730
  Transmission Date: 20140515
  Serious: Yes (Hospitalization, Other)
  Sender: FDA-Public Use
  Company Number: TW-SHIRE-SPV1-2010-01002

PATIENT
  Age: 6 Year
  Sex: Male
  Weight: 33.5 kg

DRUGS (2)
  1. IDURSULFASE [Suspect]
     Indication: MUCOPOLYSACCHARIDOSIS II
     Dosage: 0.5 MG/KG, 1X/WEEK (18 MG)
     Route: 041
     Dates: start: 20080103
  2. COZAAR [Concomitant]
     Indication: CARDIOVASCULAR DISORDER
     Dosage: 17 MG, 1X/DAY:QD
     Route: 048
     Dates: start: 20081231

REACTIONS (3)
  - Otitis media acute [Recovered/Resolved]
  - Inguinal hernia [Recovering/Resolving]
  - Pneumonia [Not Recovered/Not Resolved]
